FAERS Safety Report 8125905-X (Version None)
Quarter: 2012Q1

REPORT INFORMATION
  Report Type: 
  Country: None (occurrence: None)
  Receive Date: 20120209
  Receipt Date: 20120203
  Transmission Date: 20120608
  Serious: Yes (Other)
  Sender: FDA-Public Use
  Company Number: US-ELI_LILLY_AND_COMPANY-US200906003211

PATIENT
  Sex: Male

DRUGS (6)
  1. METFORMIN HCL [Concomitant]
  2. RAMIPRIL [Concomitant]
  3. HUMALOG MIX 75/25 [Suspect]
     Dosage: UNK, UNK
  4. HUMALOG MIX 50/50 [Suspect]
     Dosage: UNK, UNK
  5. GLUCOPHAGE [Concomitant]
  6. HUMALOG [Suspect]
     Dosage: UNK, UNK

REACTIONS (14)
  - OSTEOPOROSIS [None]
  - ANAEMIA [None]
  - UNDERWEIGHT [None]
  - RENAL FAILURE CHRONIC [None]
  - BLOOD GLUCOSE INCREASED [None]
  - PROSTATOMEGALY [None]
  - PANCREATIC DISORDER [None]
  - LOSS OF CONSCIOUSNESS [None]
  - PROSTATE CANCER [None]
  - HAEMORRHAGE [None]
  - CATHETER SITE HAEMORRHAGE [None]
  - BLINDNESS TRANSIENT [None]
  - BLOOD GLUCOSE DECREASED [None]
  - URINARY INCONTINENCE [None]
